FAERS Safety Report 8468860-5 (Version None)
Quarter: 2012Q2

REPORT INFORMATION
  Report Type: 
  Country: None (occurrence: None)
  Receive Date: 20120626
  Receipt Date: 20120613
  Transmission Date: 20120825
  Serious: No
  Sender: FDA-Public Use
  Company Number: US-ASTRAZENECA-2012SE39677

PATIENT
  Sex: Female
  Weight: 97.1 kg

DRUGS (4)
  1. IBUPROFEN (ADVIL) [Concomitant]
  2. THYROID MEDICATION [Concomitant]
  3. ZOMIG [Suspect]
     Indication: MIGRAINE
     Route: 048
     Dates: start: 20100101, end: 20120601
  4. ZOMIG [Suspect]
     Route: 048
     Dates: start: 20120613

REACTIONS (8)
  - BRONCHITIS [None]
  - PAIN [None]
  - ADVERSE EVENT [None]
  - DRY MOUTH [None]
  - DRUG INEFFECTIVE [None]
  - PRODUCT TASTE ABNORMAL [None]
  - ASTHMA [None]
  - NAUSEA [None]
